FAERS Safety Report 6485129-9 (Version None)
Quarter: 2009Q4

REPORT INFORMATION
  Report Type: 
  Country: None (occurrence: None)
  Receive Date: 20091204
  Receipt Date: 20091118
  Transmission Date: 20100525
  Serious: Yes (Hospitalization)
  Sender: FDA-Public Use
  Company Number: DSA_42092_2009

PATIENT
  Age: 81 Year
  Sex: Female

DRUGS (3)
  1. DILTIAZEM [Suspect]
     Indication: HYPERTENSION
     Dosage: (DF)
     Dates: start: 20090630, end: 20090709
  2. SEGURIIL /000032601/ (SEGURIL-FUROSEMIDE) (NOT SPECIFIED) [Suspect]
     Indication: HYPERTENSION
     Dosage: (DF)
     Dates: start: 20090630, end: 20090709
  3. LISINOPRIL [Suspect]
     Indication: HYPERTENSION
     Dosage: (DF)
     Dates: start: 20090630, end: 20090709

REACTIONS (3)
  - ANGIOEDEMA [None]
  - HAEMATURIA [None]
  - SENSATION OF FOREIGN BODY [None]
